FAERS Safety Report 8063610-9 (Version None)
Quarter: 2012Q1

REPORT INFORMATION
  Report Type: 
  Country: None (occurrence: None)
  Receive Date: 20120123
  Receipt Date: 20120113
  Transmission Date: 20120608
  Serious: Yes (Hospitalization)
  Sender: FDA-Public Use
  Company Number: SE-UCBSA-049857

PATIENT
  Age: 41 Year
  Sex: Female

DRUGS (6)
  1. XYLOPROCT [Concomitant]
  2. PREDNISOLONE [Concomitant]
  3. METHOTREXATE [Suspect]
     Indication: RHEUMATOID ARTHRITIS
     Dosage: 10MG
     Dates: end: 20111129
  4. DILTIAZEM HCL [Concomitant]
  5. CIMZIA [Suspect]
     Indication: RHEUMATOID ARTHRITIS
     Dosage: 200MG
     Route: 058
     Dates: end: 20111129
  6. FOLIC ACID [Concomitant]

REACTIONS (1)
  - PNEUMONIA [None]
